FAERS Safety Report 6728355-3 (Version None)
Quarter: 2010Q2

REPORT INFORMATION
  Report Type: 
  Country: None (occurrence: None)
  Receive Date: 20100517
  Receipt Date: 20100503
  Transmission Date: 20101027
  Serious: Yes (Hospitalization)
  Sender: FDA-Public Use
  Company Number: NL-MEDIMMUNE-MEDI-0011174

PATIENT
  Sex: Female
  Weight: 3.65 kg

DRUGS (2)
  1. SYNAGIS [Suspect]
     Dates: start: 20100210, end: 20100309
  2. SYNAGIS [Suspect]
     Dates: start: 20100407, end: 20100407

REACTIONS (3)
  - NASOPHARYNGITIS [None]
  - PYREXIA [None]
  - RESPIRATORY TRACT INFECTION [None]
